FAERS Safety Report 18672881 (Version 2)
Quarter: 2021Q4

REPORT INFORMATION
  Report Type: Spontaneous
  Country: JP (occurrence: JP)
  Receive Date: 20201229
  Receipt Date: 20211201
  Transmission Date: 20220303
  Serious: Yes (Other)
  Sender: FDA-Public Use
  Company Number: JP-JNJFOC-20201250327

PATIENT
  Sex: Male

DRUGS (1)
  1. TRAMCET [Suspect]
     Active Substance: ACETAMINOPHEN\TRAMADOL
     Indication: Product used for unknown indication
     Dosage: IN THE MORNING: 1DF, IN THE EVENING: 1DF
     Route: 048

REACTIONS (3)
  - Erectile dysfunction [Unknown]
  - Constipation [Unknown]
  - Treatment noncompliance [Unknown]
